FAERS Safety Report 10037443 (Version 1)
Quarter: 2014Q1

REPORT INFORMATION
  Report Type: Spontaneous
  Country: RU (occurrence: RU)
  Receive Date: 20140326
  Receipt Date: 20140326
  Transmission Date: 20141002
  Serious: Yes (Other)
  Sender: FDA-Public Use
  Company Number: RU-US-EMD SERONO, INC.-7275987

PATIENT
  Age: 27 Year
  Sex: Female

DRUGS (4)
  1. GONAL-F [Suspect]
     Indication: OVULATION INDUCTION
  2. CETROTIDE (CETRORELIX ACETATE FOR INJECTION) [Suspect]
     Indication: OVULATION INDUCTION
  3. OVITRELLE [Suspect]
     Indication: OVULATION INDUCTION
  4. CRINONE [Suspect]
     Indication: OVULATION INDUCTION

REACTIONS (3)
  - Abortion spontaneous [Unknown]
  - Premature labour [Unknown]
  - Multiple pregnancy [Recovered/Resolved]
